FAERS Safety Report 24575724 (Version 1)
Quarter: 2024Q4

REPORT INFORMATION
  Report Type: Spontaneous
  Country: US (occurrence: None)
  Receive Date: 20241101
  Receipt Date: 20241101
  Transmission Date: 20250114
  Serious: Yes (Other)
  Sender: Public
  Company Number: None

PATIENT
  Age: 75 Year
  Sex: Male
  Weight: 108 kg

DRUGS (4)
  1. KRYSTEXXA [Suspect]
     Active Substance: PEGLOTICASE
     Indication: Gout
     Dosage: 8 G GRAM(S) EVERY 2 WEEKS  INTRAVENOUS?
     Route: 042
     Dates: start: 20230404
  2. Diphenhydramine 25 mg by mouth [Concomitant]
  3. Acetaminophen 650 mg by mouth [Concomitant]
  4. Solu-Medrol 80 mg IV [Concomitant]

REACTIONS (3)
  - Dizziness [None]
  - Loss of consciousness [None]
  - Blood pressure decreased [None]

NARRATIVE: CASE EVENT DATE: 20241031
